FAERS Safety Report 17442107 (Version 1)
Quarter: 2020Q1

REPORT INFORMATION
  Report Type: Spontaneous
  Country: FR (occurrence: FR)
  Receive Date: 20200220
  Receipt Date: 20200220
  Transmission Date: 20200409
  Serious: Yes (Other)
  Sender: FDA-Public Use
  Company Number: FR-009507513-2002FRA002460

PATIENT
  Age: 25 Year
  Sex: Female
  Weight: 108 kg

DRUGS (2)
  1. NEXPLANON [Suspect]
     Active Substance: ETONOGESTREL
     Indication: CONTRACEPTION
     Dosage: 68 MILLIGRAM, RIGHT ARM
     Route: 058
     Dates: start: 20191108
  2. LEVOTHYROX [Concomitant]
     Active Substance: LEVOTHYROXINE
     Indication: HYPOTHYROIDISM
     Dosage: UNK

REACTIONS (11)
  - Implant site haemorrhage [Unknown]
  - Menorrhagia [Unknown]
  - Metrorrhagia [Unknown]
  - Haematoma [Unknown]
  - Complication of device removal [Not Recovered/Not Resolved]
  - Venous haemorrhage [Unknown]
  - Scar [Unknown]
  - Paraesthesia [Unknown]
  - Adverse event [Unknown]
  - Complication associated with device [Recovered/Resolved]
  - Device use issue [Unknown]

NARRATIVE: CASE EVENT DATE: 20191130
